FAERS Safety Report 4905331-4 (Version None)
Quarter: 2006Q1

REPORT INFORMATION
  Report Type: 
  Country: None (occurrence: None)
  Receive Date: 20060207
  Receipt Date: 20060207
  Transmission Date: 20060701
  Serious: Yes (Death)
  Sender: FDA-Public Use
  Company Number: None

PATIENT
  Age: 86 Year
  Sex: Male
  Weight: 72.5755 kg

DRUGS (8)
  1. ACTIVASE [Suspect]
     Indication: ISCHAEMIC STROKE
     Dosage: 66 MG   ONCE   IV DRIP
     Route: 041
     Dates: start: 20050125, end: 20050125
  2. ALLOPURINOL [Concomitant]
  3. PANTOPRAZOLE [Concomitant]
  4. ASPIRIN [Concomitant]
  5. TOPROL-XL [Concomitant]
  6. DIGOXIN [Concomitant]
  7. GABAPENTIN [Concomitant]
  8. FUROSEMIDE [Concomitant]

REACTIONS (1)
  - HAEMORRHAGIC INFARCTION [None]
